FAERS Safety Report 6989610-5 (Version None)
Quarter: 2010Q3

REPORT INFORMATION
  Report Type: 
  Country: None (occurrence: None)
  Receive Date: 20100916
  Receipt Date: 20100127
  Transmission Date: 20110219
  Serious: Yes (Hospitalization)
  Sender: FDA-Public Use
  Company Number: FR-PFIZER INC-2010010835

PATIENT
  Sex: Female
  Weight: 63.6 kg

DRUGS (10)
  1. LYRICA [Suspect]
     Indication: HERNIA PAIN
     Dosage: 75 MG, 2X/DAY
     Route: 048
     Dates: start: 20090801, end: 20091212
  2. IXPRIM [Suspect]
     Indication: HERNIA PAIN
     Dosage: 37.5 MG, 4X/DAY
     Route: 048
     Dates: end: 20091124
  3. FENOFIBRATE [Concomitant]
     Dosage: 160 MG, 1X/DAY
  4. ATENOLOL [Concomitant]
     Dosage: 50 MG, 1X/DAY
  5. KARDEGIC [Concomitant]
     Dosage: 160 MG, 1X/DAY
  6. PLAVIX [Concomitant]
     Dosage: 75 UNK, 1X/DAY
  7. NITROGLYCERIN [Concomitant]
     Dosage: 1 DF, 1X/DAY
  8. LEVOTHYROXINE SODIUM [Concomitant]
     Dosage: 100 UG, 1X/DAY
  9. INIPOMP [Concomitant]
     Dosage: 20 MG, 1X/DAY
  10. FORLAX [Concomitant]
     Dosage: UNK DF, 2X/DAY

REACTIONS (2)
  - DRUG WITHDRAWAL SYNDROME [None]
  - VERTIGO [None]
